FAERS Safety Report 8247329-7 (Version None)
Quarter: 2012Q1

REPORT INFORMATION
  Report Type: 
  Country: None (occurrence: None)
  Receive Date: 20120316
  Receipt Date: 20100315
  Transmission Date: 20120608
  Serious: Yes (Disabling)
  Sender: FDA-Public Use
  Company Number: PHEH2010US03138

PATIENT
  Age: 75 Year
  Sex: Female
  Weight: 61.7 kg

DRUGS (4)
  1. ENALAPRIL MALEATE [Concomitant]
  2. EXELON (RIVASTIGMINE TARTRATE) TRANS-THERAPEUTIC-SYSTEM [Concomitant]
  3. NEURONTIN [Concomitant]
  4. TEKTURNA [Suspect]
     Indication: HYPERTENSION
     Dosage: 150 MG, QD, ORAL
     Route: 048
     Dates: start: 20090928, end: 20100303

REACTIONS (1)
  - HYPOTENSION [None]
